FAERS Safety Report 9316199 (Version 1)
Quarter: 2013Q2

REPORT INFORMATION
  Report Type: Spontaneous
  Country: US (occurrence: None)
  Receive Date: 20130522
  Receipt Date: 20130522
  Transmission Date: 20140414
  Serious: Yes (Other)
  Sender: FDA-Public Use
  Company Number: 2013P1006038

PATIENT
  Age: 66 Year
  Sex: Male

DRUGS (3)
  1. INFUMORPH [Suspect]
     Indication: POST LAMINECTOMY SYNDROME
     Route: 037
  2. INFUMORPH [Suspect]
     Indication: SPINAL PAIN
     Route: 037
  3. INFUMORPH [Suspect]
     Indication: PAIN
     Route: 037

REACTIONS (1)
  - Implant site infection [None]
